FAERS Safety Report 25586205 (Version 1)
Quarter: 2025Q3

REPORT INFORMATION
  Report Type: Spontaneous
  Country: US (occurrence: None)
  Receive Date: 20250719
  Receipt Date: 20250719
  Transmission Date: 20251020
  Serious: Yes (Hospitalization, Other)
  Sender: FDA-CTU
  Company Number: None

PATIENT
  Age: 90 Year
  Sex: Female
  Weight: 54 kg

DRUGS (3)
  1. BRIMONIDINE [Suspect]
     Active Substance: BRIMONIDINE TARTRATE
     Indication: Glaucoma
     Dosage: FREQUENCY : TWICE A DAY;?
     Route: 047
  2. TIMOLOL MALEATE [Concomitant]
     Active Substance: TIMOLOL MALEATE
     Dates: start: 20230725, end: 20250719
  3. LATANOPROST [Concomitant]
     Active Substance: LATANOPROST
     Dates: start: 20230725, end: 20250719

REACTIONS (5)
  - Headache [None]
  - Somnolence [None]
  - Dizziness [None]
  - Intentional product use issue [None]
  - Blood pressure decreased [None]

NARRATIVE: CASE EVENT DATE: 20250719
